FAERS Safety Report 4882011-5 (Version None)
Quarter: 2006Q1

REPORT INFORMATION
  Report Type: 
  Country: None (occurrence: None)
  Receive Date: 20060117
  Receipt Date: 20060106
  Transmission Date: 20060701
  Serious: Yes (Hospitalization)
  Sender: FDA-Public Use
  Company Number: FR-AVENTIS-200610044FR

PATIENT
  Age: 61 Year
  Sex: Female

DRUGS (7)
  1. ARAVA [Suspect]
     Indication: RHEUMATOID ARTHRITIS
     Route: 048
     Dates: start: 20050601, end: 20050701
  2. ARAVA [Suspect]
     Route: 048
     Dates: start: 20050701, end: 20050824
  3. IMOVANE [Suspect]
     Route: 048
  4. MONO-TILDIEM [Concomitant]
     Route: 048
  5. ZOCOR [Concomitant]
     Route: 048
  6. KENZEN [Concomitant]
     Route: 048
  7. KARDEGIC [Concomitant]
     Route: 048

REACTIONS (14)
  - ALANINE AMINOTRANSFERASE INCREASED [None]
  - ANAEMIA [None]
  - BLOOD ALKALINE PHOSPHATASE INCREASED [None]
  - BLOOD PRESSURE DECREASED [None]
  - C-REACTIVE PROTEIN INCREASED [None]
  - COLITIS ULCERATIVE [None]
  - DIARRHOEA [None]
  - DISEASE RECURRENCE [None]
  - HEPATOCELLULAR DAMAGE [None]
  - HEPATOMEGALY [None]
  - PYREXIA [None]
  - RENAL FAILURE [None]
  - VOMITING [None]
  - WEIGHT DECREASED [None]
